FAERS Safety Report 16716559 (Version 1)
Quarter: 2019Q3

REPORT INFORMATION
  Report Type: Report from Study
  Country: US (occurrence: US)
  Receive Date: 20190819
  Receipt Date: 20190819
  Transmission Date: 20191005
  Serious: Yes (Other)
  Sender: FDA-Public Use
  Company Number: US-PFIZER INC-2019351352

PATIENT
  Age: 70 Year
  Sex: Female

DRUGS (1)
  1. IBRANCE [Suspect]
     Active Substance: PALBOCICLIB
     Indication: BREAST CANCER METASTATIC
     Dosage: 125 MG, CYCLIC (21 OUT OF 28 DAYS)
     Route: 048
     Dates: start: 2017

REACTIONS (9)
  - Hypokalaemia [Unknown]
  - Leukopenia [Unknown]
  - Product dose omission [Unknown]
  - Alopecia [Unknown]
  - Contusion [Unknown]
  - Thrombocytopenia [Unknown]
  - Night sweats [Unknown]
  - Pyrexia [Unknown]
  - Nausea [Unknown]
